FAERS Safety Report 6321779 (Version 3)
Quarter: 2013Q4

REPORT INFORMATION
  Report Type: Spontaneous
  Country: GB (occurrence: GB)
  Receive Date: 20070529
  Receipt Date: 20131220
  Transmission Date: 20140711
  Serious: Yes (Life-Threatening, Hospitalization)
  Sender: FDA-Public Use
  Company Number: GB-PFIZER INC-2007040979

PATIENT
  Age: 22 Year
  Sex: Male

DRUGS (5)
  1. VINCRISTINE SULFATE [Suspect]
     Indication: B-CELL LYMPHOMA
     Dosage: UNK
     Dates: start: 200703
  2. CYCLOPHOSPHAMIDE [Suspect]
     Indication: B-CELL LYMPHOMA
     Dosage: UNK
     Dates: start: 200703
  3. PREDNISONE [Suspect]
     Indication: B-CELL LYMPHOMA
     Dosage: UNK
     Dates: start: 200703
  4. ADRIAMYCIN [Suspect]
     Indication: B-CELL LYMPHOMA
     Dosage: UNK
     Dates: start: 200703
  5. MABTHERA [Suspect]
     Indication: B-CELL LYMPHOMA
     Dosage: UNK
     Dates: start: 200703

REACTIONS (4)
  - Cytomegalovirus infection [Not Recovered/Not Resolved]
  - Colitis [Not Recovered/Not Resolved]
  - Pneumonitis [Not Recovered/Not Resolved]
  - Hepatitis [Unknown]
